FAERS Safety Report 6543786-2 (Version None)
Quarter: 2010Q1

REPORT INFORMATION
  Report Type: 
  Country: None (occurrence: None)
  Receive Date: 20100120
  Receipt Date: 20091125
  Transmission Date: 20100710
  Serious: No
  Sender: FDA-Public Use
  Company Number: US-BRISTOL-MYERS SQUIBB COMPANY-14862999

PATIENT
  Age: 62 Year
  Sex: Male

DRUGS (3)
  1. ERBITUX [Suspect]
     Indication: TONGUE NEOPLASM MALIGNANT STAGE UNSPECIFIED
     Dosage: TOTAL DOSE 560MG
     Route: 042
     Dates: start: 20091118
  2. CISPLATIN [Suspect]
  3. TAXOTERE [Suspect]

REACTIONS (1)
  - CONTUSION [None]
